FAERS Safety Report 9977878 (Version 1)
Quarter: 2014Q1

REPORT INFORMATION
  Report Type: Report from Study
  Country: US (occurrence: US)
  Receive Date: 20140306
  Receipt Date: 20140306
  Transmission Date: 20141002
  Serious: No
  Sender: FDA-Public Use
  Company Number: US-ABBVIE-13P-163-1161870-00

PATIENT
  Age: 53 Year
  Sex: Male
  Weight: 93.52 kg

DRUGS (3)
  1. HUMIRA [Suspect]
     Indication: RHEUMATOID ARTHRITIS
     Dates: start: 2012
  2. METHOTREXATE [Concomitant]
     Indication: PRODUCT USED FOR UNKNOWN INDICATION
  3. CINNAMON [Concomitant]
     Indication: PRODUCT USED FOR UNKNOWN INDICATION

REACTIONS (7)
  - Parkinson^s disease [Unknown]
  - Arthralgia [Unknown]
  - Drug dose omission [Unknown]
  - Pneumonia [Unknown]
  - Injection site pain [Unknown]
  - Tremor [Unknown]
  - Nasopharyngitis [Unknown]
